FAERS Safety Report 18261665 (Version 3)
Quarter: 2020Q4

REPORT INFORMATION
  Report Type: Spontaneous
  Country: US (occurrence: US)
  Receive Date: 20200914
  Receipt Date: 20201006
  Transmission Date: 20210113
  Serious: No
  Sender: FDA-Public Use
  Company Number: US-BIOGEN-2020BI00922544

PATIENT
  Age: 67 Year
  Sex: Female

DRUGS (6)
  1. DARIFENACIN. [Concomitant]
     Active Substance: DARIFENACIN
     Route: 065
  2. AVONEX PEN [Suspect]
     Active Substance: INTERFERON BETA-1A
  3. AVONEX PEN [Suspect]
     Active Substance: INTERFERON BETA-1A
  4. PROLIA [Concomitant]
     Active Substance: DENOSUMAB
     Route: 065
  5. AVONEX PEN [Suspect]
     Active Substance: INTERFERON BETA-1A
     Indication: PRODUCT USED FOR UNKNOWN INDICATION
     Route: 030
     Dates: start: 2015
  6. AVONEX PEN [Suspect]
     Active Substance: INTERFERON BETA-1A

REACTIONS (2)
  - Dry mouth [Unknown]
  - Lip exfoliation [Unknown]

NARRATIVE: CASE EVENT DATE: 20200909
